FAERS Safety Report 14589845 (Version 7)
Quarter: 2018Q4

REPORT INFORMATION
  Report Type: Spontaneous
  Country: US (occurrence: US)
  Receive Date: 20180302
  Receipt Date: 20181015
  Transmission Date: 20190204
  Serious: Yes (Hospitalization, Other)
  Sender: FDA-Public Use
  Company Number: US-UCBSA-2017039553

PATIENT
  Age: 61 Year
  Sex: Female
  Weight: 93 kg

DRUGS (13)
  1. VIMPAT [Suspect]
     Active Substance: LACOSAMIDE
     Dosage: 100 MG, 2X/DAY (BID)
     Dates: start: 201701, end: 2017
  2. VIMPAT [Suspect]
     Active Substance: LACOSAMIDE
     Dosage: 1 TABLET TO 1/2 TABLET IN THE AM THEN NORMAL DOSE OF 1 TABLET AT NIGHT
     Route: 048
  3. AMLODIPINE [Concomitant]
     Active Substance: AMLODIPINE BESYLATE
     Indication: PRODUCT USED FOR UNKNOWN INDICATION
     Dosage: 2.5 MG, ONCE DAILY (QD)
  4. ATENOLOL. [Suspect]
     Active Substance: ATENOLOL
     Dosage: 50 MG, ONCE DAILY (QD)
     Route: 048
     Dates: start: 201610
  5. SYNTHROID [Concomitant]
     Active Substance: LEVOTHYROXINE SODIUM
     Indication: THYROID DISORDER
     Dosage: 25 ?G, EV 2 DAYS (QOD)
     Dates: start: 2011
  6. VIMPAT [Suspect]
     Active Substance: LACOSAMIDE
     Indication: PARTIAL SEIZURES
     Dosage: 50 MG, 2X/DAY (BID)
     Route: 048
     Dates: start: 2012
  7. IBUPROFEN. [Concomitant]
     Active Substance: IBUPROFEN
     Indication: PRODUCT USED FOR UNKNOWN INDICATION
     Dosage: UNK
  8. CLONIDINE. [Concomitant]
     Active Substance: CLONIDINE
     Indication: PRODUCT USED FOR UNKNOWN INDICATION
     Dosage: 0.1 MG 1/2 ONCE DAILY
     Dates: start: 20171124
  9. ATENOLOL. [Suspect]
     Active Substance: ATENOLOL
     Indication: HEART RATE INCREASED
     Dosage: 50 MG, AS NEEDED (PRN)
     Route: 048
     Dates: start: 201508
  10. ARMOUR THYROID [Concomitant]
     Active Substance: THYROID, PORCINE
     Indication: PRODUCT USED FOR UNKNOWN INDICATION
     Dosage: 15 MG, ONCE DAILY (QD)
     Dates: start: 20171124
  11. VIMPAT [Suspect]
     Active Substance: LACOSAMIDE
     Dosage: 50 MG, 2X/DAY (BID)
     Route: 048
     Dates: start: 20170919
  12. ATENOLOL. [Suspect]
     Active Substance: ATENOLOL
     Dosage: 25 MG, ONCE DAILY (QD)
     Route: 048
     Dates: start: 201711
  13. ATENOLOL. [Suspect]
     Active Substance: ATENOLOL
     Indication: HYPERTENSION
     Dosage: 25 MG, ONCE DAILY (QD) (1/2 TABLET  DAILY)
     Route: 048
     Dates: start: 2011

REACTIONS (15)
  - Atrial fibrillation [Recovering/Resolving]
  - Partial seizures [Recovered/Resolved]
  - Heart rate decreased [Not Recovered/Not Resolved]
  - Hepatic enzyme increased [Not Recovered/Not Resolved]
  - Feeling jittery [Not Recovered/Not Resolved]
  - Rebound tachycardia [Recovered/Resolved]
  - Cystitis [Not Recovered/Not Resolved]
  - Myocardial infarction [Recovered/Resolved]
  - Kidney infection [Not Recovered/Not Resolved]
  - Dyspnoea [Not Recovered/Not Resolved]
  - Wrong technique in product usage process [Unknown]
  - Seizure [Recovered/Resolved]
  - Fatigue [Not Recovered/Not Resolved]
  - Chest discomfort [Not Recovered/Not Resolved]
  - Nephrolithiasis [Unknown]

NARRATIVE: CASE EVENT DATE: 2012
